FAERS Safety Report 24531665 (Version 1)
Quarter: 2024Q4

REPORT INFORMATION
  Report Type: Report from Study
  Country: US (occurrence: US)
  Receive Date: 20241022
  Receipt Date: 20241022
  Transmission Date: 20250114
  Serious: No
  Sender: ROCHE
  Company Number: US-ROCHE-3549939

PATIENT
  Age: 31 Year
  Sex: Female

DRUGS (6)
  1. PULMOZYME [Suspect]
     Active Substance: DORNASE ALFA
     Indication: Lung disorder
     Dosage: NEBULIZE THE CONTENTS OF 1 VIAL(S) (2.5ML) TWICE A DAY
     Route: 055
  2. PULMOZYME [Suspect]
     Active Substance: DORNASE ALFA
     Indication: Bronchospasm
  3. PULMOZYME [Suspect]
     Active Substance: DORNASE ALFA
     Indication: Asthma
  4. AMOXICILLIN [Concomitant]
     Active Substance: AMOXICILLIN
  5. BACTRIM [Concomitant]
     Active Substance: SULFAMETHOXAZOLE\TRIMETHOPRIM
  6. CAPTOPRIL [Concomitant]
     Active Substance: CAPTOPRIL

REACTIONS (2)
  - Off label use [Unknown]
  - No adverse event [Unknown]
